FAERS Safety Report 8561533-X (Version None)
Quarter: 2012Q3

REPORT INFORMATION
  Report Type: 
  Country: None (occurrence: None)
  Receive Date: 20120802
  Receipt Date: 20120718
  Transmission Date: 20120928
  Serious: No
  Sender: FDA-Public Use
  Company Number: US-ASTRAZENECA-2012SE50534

PATIENT
  Age: 37 Year
  Sex: Male
  Weight: 95.3 kg

DRUGS (3)
  1. SEROQUEL [Suspect]
     Indication: SLEEP DISORDER
     Route: 048
  2. LAMICTAL [Concomitant]
  3. AMBIEN [Concomitant]
     Indication: SLEEP DISORDER

REACTIONS (2)
  - OFF LABEL USE [None]
  - DRUG EFFECT DECREASED [None]
